FAERS Safety Report 17285293 (Version 3)
Quarter: 2020Q1

REPORT INFORMATION
  Report Type: Report from Study
  Country: US (occurrence: US)
  Receive Date: 20200117
  Receipt Date: 20200304
  Transmission Date: 20200409
  Serious: Yes (Hospitalization)
  Sender: FDA-Public Use
  Company Number: US-BIOMARINAP-US-2020-127972

PATIENT
  Age: 18 Year
  Sex: Male
  Weight: 65.1 kg

DRUGS (7)
  1. BRINEURA [Suspect]
     Active Substance: CERLIPONASE ALFA
     Indication: NEURONAL CEROID LIPOFUSCINOSIS
     Dosage: 300 MILLIGRAM, QOW
     Route: 020
     Dates: start: 20191115
  2. IBUPROFEN. [Concomitant]
     Active Substance: IBUPROFEN
     Indication: PREMEDICATION
     Dosage: 600 MILLIGRAM
     Route: 048
  3. PREDNISONE. [Concomitant]
     Active Substance: PREDNISONE
     Indication: INFUSION RELATED REACTION
     Dosage: 60 MILLIGRAM
  4. PREDNISONE. [Concomitant]
     Active Substance: PREDNISONE
     Indication: INFLAMMATION
  5. ONDANSETRON [Concomitant]
     Active Substance: ONDANSETRON
     Indication: NAUSEA
     Dosage: UNK, PRN
     Route: 048
  6. ELECTROLYTE SOLUTIONS [ELECTROLYTES NOS] [Concomitant]
     Indication: PRODUCT USED FOR UNKNOWN INDICATION
     Dosage: 2 MILLILITER
     Route: 020
  7. ZYRTEC [Concomitant]
     Active Substance: CETIRIZINE HYDROCHLORIDE
     Indication: PREMEDICATION

REACTIONS (7)
  - Headache [Recovered/Resolved]
  - Eye pain [Recovered/Resolved]
  - Pyrexia [Recovered/Resolved]
  - Migraine [Recovered/Resolved]
  - Photophobia [Recovered/Resolved]
  - Nausea [Recovered/Resolved]
  - Ocular discomfort [Recovered/Resolved]

NARRATIVE: CASE EVENT DATE: 20191215
